FAERS Safety Report 24687392 (Version 1)
Quarter: 2024Q4

REPORT INFORMATION
  Report Type: Spontaneous
  Country: US (occurrence: US)
  Receive Date: 20241202
  Receipt Date: 20241202
  Transmission Date: 20250114
  Serious: Yes (Hospitalization, Other)
  Sender: MEITHEAL PHARMACEUTICALS
  Company Number: US-MEITHEAL-2024MPLIT00400

PATIENT
  Age: 61 Year
  Sex: Male

DRUGS (1)
  1. MITOMYCIN [Suspect]
     Active Substance: MITOMYCIN
     Indication: Pterygium
     Dosage: FOR 45 SECONDS
     Route: 061

REACTIONS (2)
  - Scleral thinning [Recovered/Resolved]
  - Product use issue [Unknown]
